FAERS Safety Report 9557959 (Version 1)
Quarter: 2013Q3

REPORT INFORMATION
  Report Type: Report from Study
  Country: BR (occurrence: BR)
  Receive Date: 20130926
  Receipt Date: 20130926
  Transmission Date: 20140515
  Serious: Yes (Other)
  Sender: FDA-Public Use
  Company Number: PHHY2013BR106972

PATIENT
  Sex: Female

DRUGS (2)
  1. ACLASTA [Suspect]
     Dosage: 5 MG
     Route: 042
  2. EVISTA [Concomitant]
     Dosage: UNK

REACTIONS (5)
  - Multiple fractures [Unknown]
  - Weight gain poor [Unknown]
  - Blood calcium decreased [Unknown]
  - Fatigue [Unknown]
  - Malaise [Unknown]
